FAERS Safety Report 21320714 (Version 2)
Quarter: 2022Q4

REPORT INFORMATION
  Report Type: Report from Study
  Country: ES (occurrence: ES)
  Receive Date: 20220912
  Receipt Date: 20221010
  Transmission Date: 20230112
  Serious: Yes (Hospitalization)
  Sender: FDA-Public Use
  Company Number: ES-BRISTOL-MYERS SQUIBB COMPANY-2022-102335

PATIENT
  Age: 41 Year
  Sex: Female
  Weight: 77 kg

DRUGS (4)
  1. NIVOLUMAB [Suspect]
     Active Substance: NIVOLUMAB
     Indication: Soft tissue sarcoma
     Route: 065
     Dates: start: 20191028
  2. NIVOLUMAB [Suspect]
     Active Substance: NIVOLUMAB
     Indication: Bone sarcoma
  3. SUNITINIB MALATE [Suspect]
     Active Substance: SUNITINIB MALATE
     Indication: Soft tissue sarcoma
     Route: 065
     Dates: start: 20190828, end: 20191111
  4. SUNITINIB MALATE [Suspect]
     Active Substance: SUNITINIB MALATE
     Indication: Bone sarcoma
     Route: 065
     Dates: start: 20191111

REACTIONS (2)
  - Sciatica [Recovered/Resolved]
  - Gait disturbance [Recovered/Resolved]

NARRATIVE: CASE EVENT DATE: 20220818
